FAERS Safety Report 5139684-1 (Version None)
Quarter: 2006Q4

REPORT INFORMATION
  Report Type: 
  Country: None (occurrence: None)
  Receive Date: 20061024
  Receipt Date: 20061010
  Transmission Date: 20070319
  Serious: Yes (Disabling)
  Sender: FDA-Public Use
  Company Number: 2006SP003719

PATIENT
  Age: 14 Year
  Sex: Male

DRUGS (4)
  1. DESLORATADINE [Suspect]
     Indication: ASTHMA
     Dosage: PO
     Route: 048
  2. ANAFRANIL [Suspect]
     Dosage: PO
     Route: 048
  3. SINGULAIR [Suspect]
     Indication: ASTHMA
     Dosage: 10 MG; QD; PO
     Route: 048
     Dates: start: 20051101, end: 20060901
  4. SYMBICORT [Suspect]
     Indication: ASTHMA
     Dosage: INH
     Route: 055

REACTIONS (2)
  - LEUKOPENIA [None]
  - SYSTEMIC LUPUS ERYTHEMATOSUS [None]
